FAERS Safety Report 5201045-4 (Version None)
Quarter: 2007Q1

REPORT INFORMATION
  Report Type: 
  Country: None (occurrence: None)
  Receive Date: 20070108
  Receipt Date: 20070102
  Transmission Date: 20070707
  Serious: Yes (Other)
  Sender: FDA-Public Use
  Company Number: GB-ELI_LILLY_AND_COMPANY-GB200701000101

PATIENT
  Age: 49 Year
  Sex: Female
  Weight: 100 kg

DRUGS (2)
  1. ZYPREXA [Suspect]
     Indication: MAJOR DEPRESSION
     Route: 048
     Dates: start: 20051101
  2. VENLAFAXINE HCL [Concomitant]
     Indication: MAJOR DEPRESSION
     Dosage: 75 MG, UNK
     Route: 048
     Dates: start: 20051101

REACTIONS (2)
  - OBESITY [None]
  - WEIGHT INCREASED [None]
